FAERS Safety Report 24611898 (Version 4)
Quarter: 2024Q4

REPORT INFORMATION
  Report Type: Spontaneous
  Country: US (occurrence: US)
  Receive Date: 20241113
  Receipt Date: 20241217
  Transmission Date: 20250115
  Serious: Yes (Other)
  Sender: ROCHE
  Company Number: US-ROCHE-10000124642

PATIENT
  Age: 91 Year
  Sex: Male

DRUGS (1)
  1. VABYSMO [Suspect]
     Active Substance: FARICIMAB-SVOA
     Indication: Neovascular age-related macular degeneration
     Dosage: INJECTION IN LEFT EYE
     Route: 050

REACTIONS (6)
  - Eye pain [Recovered/Resolved]
  - Eye disorder [Recovered/Resolved]
  - Blindness transient [Recovered/Resolved]
  - Ocular discomfort [Recovered/Resolved]
  - Visual impairment [Recovered/Resolved]
  - Off label use [Unknown]

NARRATIVE: CASE EVENT DATE: 20241029
